FAERS Safety Report 6823999-2 (Version None)
Quarter: 2010Q3

REPORT INFORMATION
  Report Type: 
  Country: None (occurrence: None)
  Receive Date: 20100708
  Receipt Date: 20061027
  Transmission Date: 20110219
  Serious: Yes (Other)
  Sender: FDA-Public Use
  Company Number: US-PFIZER INC-2006116224

PATIENT
  Sex: Female
  Weight: 73.48 kg

DRUGS (2)
  1. CHANTIX [Suspect]
     Indication: AMNESIA
     Dates: start: 20060907
  2. CELEXA [Concomitant]
     Route: 048
     Dates: start: 20030101

REACTIONS (1)
  - AMNESIA [None]
